FAERS Safety Report 8860077 (Version 2)
Quarter: 2013Q2

REPORT INFORMATION
  Report Type: Spontaneous
  Country: US (occurrence: US)
  Receive Date: 20121025
  Receipt Date: 20130423
  Transmission Date: 20140414
  Serious: No
  Sender: FDA-Public Use
  Company Number: US-BIOGENIDEC-2012BI045125

PATIENT
  Age: 52 Year
  Sex: Female

DRUGS (1)
  1. TYSABRI [Suspect]
     Indication: MULTIPLE SCLEROSIS
     Route: 042
     Dates: start: 20121001

REACTIONS (4)
  - Pain [Recovered/Resolved]
  - Hypophagia [Recovered/Resolved]
  - Hypersomnia [Recovered/Resolved]
  - Fatigue [Recovered/Resolved]
